FAERS Safety Report 11531110 (Version 1)
Quarter: 2015Q3

REPORT INFORMATION
  Report Type: Spontaneous
  Country: US (occurrence: US)
  Receive Date: 20150903
  Receipt Date: 20150903
  Transmission Date: 20151125
  Serious: Yes (Other)
  Sender: FDA-Public Use
  Company Number: US-ELI_LILLY_AND_COMPANY-US201305005023

PATIENT
  Sex: Male

DRUGS (1)
  1. CYMBALTA [Suspect]
     Active Substance: DULOXETINE HYDROCHLORIDE
     Dosage: UNK
     Dates: start: 201302

REACTIONS (8)
  - Cognitive disorder [Unknown]
  - Insomnia [Unknown]
  - Nausea [Unknown]
  - Constipation [Unknown]
  - Fatigue [Unknown]
  - Libido decreased [Unknown]
  - Serotonin syndrome [Unknown]
  - Irritability [Unknown]
